FAERS Safety Report 12463686 (Version 1)
Quarter: 2016Q2

REPORT INFORMATION
  Report Type: Spontaneous
  Country: US (occurrence: None)
  Receive Date: 20160613
  Receipt Date: 20160613
  Transmission Date: 20160815
  Serious: Yes (Disabling)
  Sender: FDA-Public Use
  Company Number: None

PATIENT
  Age: 51 Year
  Sex: Female
  Weight: 51.71 kg

DRUGS (11)
  1. TIROSINT [Concomitant]
     Active Substance: LEVOTHYROXINE SODIUM
  2. OMEGA [Concomitant]
     Active Substance: CONVALLARIA MAJALIS\CRATAEGUS LAEVIGATA LEAF\PROXYPHYLLINE
  3. CIMZIA [Suspect]
     Active Substance: CERTOLIZUMAB PEGOL
     Indication: CROHN^S DISEASE
     Dosage: 2 INJECTION(S) IN THE MORNING GIVEN INTO/UNDER THE SKIN
     Route: 058
     Dates: start: 20090723, end: 20160316
  4. XANAX [Concomitant]
     Active Substance: ALPRAZOLAM
  5. POTASSIUM [Concomitant]
     Active Substance: POTASSIUM
  6. MULTI VITAMIN [Concomitant]
     Active Substance: VITAMINS
  7. NORCO [Concomitant]
     Active Substance: ACETAMINOPHEN\HYDROCODONE BITARTRATE
  8. DYAZIDE [Concomitant]
     Active Substance: HYDROCHLOROTHIAZIDE\TRIAMTERENE
  9. ZOFRAN [Concomitant]
     Active Substance: ONDANSETRON HYDROCHLORIDE
  10. MAGNESIUM [Concomitant]
     Active Substance: MAGNESIUM
  11. B VITAMINS [Concomitant]
     Active Substance: CYANOCOBALAMIN\DEXPANTHENOL\NIACINAMIDE\PYRIDOXINE HYDROCHLORIDE\RIBOFLAVIN 5^-PHOSPHATE SODIUM\THIAMINE HYDROCHLORIDE\VITAMIN B COMPLEX

REACTIONS (16)
  - Blood glucose increased [None]
  - Drug effect decreased [None]
  - Paraesthesia [None]
  - Blood iron decreased [None]
  - Nausea [None]
  - Crohn^s disease [None]
  - Weight decreased [None]
  - Menstruation irregular [None]
  - Therapy cessation [None]
  - Rash [None]
  - Hypoglycaemia [None]
  - Fatigue [None]
  - Documented hypersensitivity to administered product [None]
  - Anaemia [None]
  - Influenza like illness [None]
  - Product label confusion [None]

NARRATIVE: CASE EVENT DATE: 20160316
